FAERS Safety Report 4922714-7 (Version None)
Quarter: 2006Q1

REPORT INFORMATION
  Report Type: 
  Country: None (occurrence: None)
  Receive Date: 20060224
  Receipt Date: 20051013
  Transmission Date: 20060701
  Serious: Yes (Hospitalization, Disabling)
  Sender: FDA-Public Use
  Company Number: PR-MERCK-0510USA07221

PATIENT
  Sex: Female
  Weight: 68 kg

DRUGS (2)
  1. VIOXX [Suspect]
     Indication: SHOULDER PAIN
     Route: 048
     Dates: start: 20020101, end: 20040101
  2. VIOXX [Suspect]
     Route: 048
     Dates: start: 20020101, end: 20040101

REACTIONS (9)
  - BACK PAIN [None]
  - BLOOD CHOLESTEROL INCREASED [None]
  - CEREBROVASCULAR ACCIDENT [None]
  - CORONARY ARTERY DISEASE [None]
  - DEEP VEIN THROMBOSIS [None]
  - DIABETES MELLITUS [None]
  - HYPERTENSION [None]
  - HYPOTHYROIDISM [None]
  - NECK PAIN [None]
